FAERS Safety Report 20080774 (Version 1)
Quarter: 2021Q4

REPORT INFORMATION
  Report Type: Spontaneous
  Country: US (occurrence: None)
  Receive Date: 20211116
  Receipt Date: 20211116
  Transmission Date: 20220303
  Serious: Yes (Hospitalization)
  Sender: FDA-Public Use
  Company Number: None

PATIENT
  Age: 61 Year
  Sex: Female

DRUGS (1)
  1. ENBREL [Suspect]
     Active Substance: ETANERCEPT
     Indication: Psoriatic arthropathy
     Dosage: FREQUENCY : WEEKLY;?
     Route: 058

REACTIONS (10)
  - Renal impairment [None]
  - General physical health deterioration [None]
  - Pain [None]
  - Sensitivity to weather change [None]
  - Fibromyalgia [None]
  - Acute stress disorder [None]
  - Blister [None]
  - Oral herpes [None]
  - Impaired driving ability [None]
  - Somnolence [None]

NARRATIVE: CASE EVENT DATE: 20211110
